FAERS Safety Report 8237342-8 (Version None)
Quarter: 2012Q1

REPORT INFORMATION
  Report Type: 
  Country: None (occurrence: None)
  Receive Date: 20120327
  Receipt Date: 20120320
  Transmission Date: 20120608
  Serious: No
  Sender: FDA-Public Use
  Company Number: US-BAYER-2012-028197

PATIENT

DRUGS (2)
  1. ALEVE (CAPLET) [Suspect]
     Indication: NECK PAIN
     Dosage: 2 TABS
     Route: 048
  2. ALEVE (CAPLET) [Suspect]
     Indication: MUSCULOSKELETAL STIFFNESS

REACTIONS (1)
  - NO ADVERSE EVENT [None]
